FAERS Safety Report 4286216-6 (Version None)
Quarter: 2004Q1

REPORT INFORMATION
  Report Type: 
  Country: None (occurrence: None)
  Receive Date: 20040114
  Receipt Date: 20030912
  Transmission Date: 20041129
  Serious: Yes (Other)
  Sender: FDA-Public Use
  Company Number: 346895

PATIENT
  Age: 54 Year
  Sex: Male
  Weight: 158.5 kg

DRUGS (2)
  1. ROCEPHIN [Suspect]
     Indication: POSTOPERATIVE INFECTION
     Dosage: 2 GRAMS DAILY
     Route: 042
     Dates: start: 20030911, end: 20030929
  2. ROCEPHIN [Suspect]
     Indication: STAPHYLOCOCCAL INFECTION
     Dosage: 2 GRAMS DAILY
     Route: 042
     Dates: start: 20030911, end: 20030929

REACTIONS (4)
  - DIZZINESS [None]
  - FLUSHING [None]
  - MEDICATION ERROR [None]
  - THROAT IRRITATION [None]
